FAERS Safety Report 14296906 (Version 1)
Quarter: 2017Q4

REPORT INFORMATION
  Report Type: Spontaneous
  Country: AU (occurrence: AU)
  Receive Date: 20171218
  Receipt Date: 20171218
  Transmission Date: 20180321
  Serious: Yes (Other)
  Sender: FDA-Public Use
  Company Number: AU-LPDUSPRD-20171688

PATIENT
  Age: 46 Year
  Sex: Female

DRUGS (1)
  1. FERINJECT [Suspect]
     Active Substance: FERRIC CARBOXYMALTOSE
     Dosage: 1 GM
     Route: 040
     Dates: start: 20171103, end: 20171103

REACTIONS (8)
  - Throat tightness [Unknown]
  - Wheezing [Unknown]
  - Dyspnoea [Unknown]
  - Malaise [Unknown]
  - Rash erythematous [Unknown]
  - Dizziness [Unknown]
  - Rash [Unknown]
  - Palpitations [Unknown]

NARRATIVE: CASE EVENT DATE: 20171103
